FAERS Safety Report 4365458-5 (Version None)
Quarter: 2004Q2

REPORT INFORMATION
  Report Type: 
  Country: None (occurrence: None)
  Receive Date: 20040526
  Receipt Date: 20040514
  Transmission Date: 20050107
  Serious: Yes (Hospitalization)
  Sender: FDA-Public Use
  Company Number: DE-BRISTOL-MYERS SQUIBB COMPANY-12591194

PATIENT
  Age: 61 Year
  Sex: Male

DRUGS (4)
  1. GLUCOPHAGE [Interacting]
     Indication: DIABETES MELLITUS NON-INSULIN-DEPENDENT
     Route: 048
     Dates: start: 19990101
  2. DELIX [Interacting]
     Indication: HYPERTENSION
     Route: 048
     Dates: start: 20000101
  3. INSUMAN BASAL [Interacting]
     Indication: DIABETES MELLITUS NON-INSULIN-DEPENDENT
     Dosage: 12 UNITS/DAY THEN DECREASED TO 10 UNITS/DAY
     Route: 058
     Dates: start: 20000101
  4. INSULIN [Suspect]
     Indication: DIABETES MELLITUS NON-INSULIN-DEPENDENT
     Dosage: 24 UNITS/DAY THEN DECREASED TO 14 UNITS/DAY
     Route: 058
     Dates: start: 20000101

REACTIONS (3)
  - CONVULSION [None]
  - DRUG INTERACTION [None]
  - SHOCK HYPOGLYCAEMIC [None]
